FAERS Safety Report 15957017 (Version 1)
Quarter: 2019Q1

REPORT INFORMATION
  Report Type: Report from Study
  Country: PT (occurrence: PT)
  Receive Date: 20190213
  Receipt Date: 20190213
  Transmission Date: 20190417
  Serious: Yes (Congenital Anomaly, Other)
  Sender: FDA-Public Use
  Company Number: PT-MYLANLABS-2019M1012862

PATIENT

DRUGS (2)
  1. EMTRICITABINE/TENOFOVIR DISOPROXIL FUMARATE [Suspect]
     Active Substance: EMTRICITABINE\TENOFOVIR DISOPROXIL FUMARATE
     Indication: PRODUCT USED FOR UNKNOWN INDICATION
     Dosage: UNK
     Route: 064
     Dates: start: 20171018
  2. ISENTRESS [Suspect]
     Active Substance: RALTEGRAVIR POTASSIUM
     Indication: PRODUCT USED FOR UNKNOWN INDICATION
     Dosage: UNK
     Route: 064
     Dates: start: 20171018

REACTIONS (8)
  - Congenital vesicoureteric reflux [Unknown]
  - Urinary ascites [Unknown]
  - Premature baby [Unknown]
  - Maternal condition affecting foetus [None]
  - Urethral valves [Unknown]
  - Hydrocalyx [Unknown]
  - Kidney perforation [Unknown]
  - Foetal exposure during pregnancy [Recovered/Resolved]
